FAERS Safety Report 5071278-9 (Version None)
Quarter: 2006Q3

REPORT INFORMATION
  Report Type: 
  Country: None (occurrence: None)
  Receive Date: 20060804
  Receipt Date: 20060724
  Transmission Date: 20061208
  Serious: Yes (Hospitalization)
  Sender: FDA-Public Use
  Company Number: US-KINGPHARMUSA00001-K200600950

PATIENT
  Age: 84 Year
  Sex: Female

DRUGS (20)
  1. ALTACE [Suspect]
     Dosage: 2.5 MG, QD
     Route: 048
  2. ALBYL-E [Suspect]
     Dosage: 75 MG, QD
     Route: 048
  3. CONFORTID [Suspect]
     Dosage: 200 MG, QD
     Route: 048
  4. PARALGIN FORTE [Concomitant]
     Dosage: UNK, PRN
     Route: 048
  5. OVESTERIN [Concomitant]
     Dosage: .5 MG, UNK
     Route: 067
  6. DIGITOXIN [Concomitant]
     Dosage: 50 UG, UNK
     Route: 048
  7. IMOVANE [Concomitant]
     Dosage: 5 MG, UNK
     Route: 048
  8. DIURAL [Concomitant]
     Dosage: 10 MG, UNK
     Route: 048
  9. LEVAXIN [Concomitant]
     Dosage: .1 MG, UNK
     Route: 048
  10. IMDUR [Concomitant]
     Dosage: 30 MG, UNK
     Route: 048
  11. SELO-ZOK [Concomitant]
     Dosage: 150 MG, UNK
     Route: 048
  12. CIPRAMIL [Concomitant]
     Dosage: 30 MG, UNK
     Route: 048
  13. CALCIGRAN FORTE [Concomitant]
     Dosage: 1 U, UNK
     Route: 048
  14. PARACET [Concomitant]
     Dosage: 4 G, UNK
     Route: 048
  15. NOBLIGAN RETARD [Concomitant]
     Dosage: 200 MG, UNK
     Route: 048
  16. NITROGLYCERIN [Concomitant]
     Dosage: .5 MG, UNK
     Route: 060
  17. HIPREX [Concomitant]
     Dosage: 2 G, UNK
     Route: 048
  18. CIPROFLOXACIN [Concomitant]
     Dosage: 500 MG, UNK
     Route: 048
  19. BETOLVEX [Concomitant]
     Dosage: UNK, QMON
     Route: 030
  20. ZOCOR [Concomitant]
     Dosage: 20 MG, UNK
     Route: 048

REACTIONS (2)
  - GASTRIC ULCER [None]
  - RENAL FAILURE [None]
